FAERS Safety Report 16588403 (Version 2)
Quarter: 2019Q3

REPORT INFORMATION
  Report Type: Report from Study
  Country: None (occurrence: US)
  Receive Date: 20190717
  Receipt Date: 20190805
  Transmission Date: 20191004
  Serious: Yes (Other)
  Sender: FDA-Public Use
  Company Number: US-ABBVIE-19K-163-2856945-00

PATIENT
  Sex: Female
  Weight: 45.4 kg

DRUGS (5)
  1. DUOPA [Suspect]
     Active Substance: CARBIDOPA\LEVODOPA
     Dosage: CONTINUOUS 7.0ML/HR
     Route: 050
     Dates: start: 2019, end: 201907
  2. DUOPA [Suspect]
     Active Substance: CARBIDOPA\LEVODOPA
     Indication: PARKINSON^S DISEASE
     Dosage: CONTINUOUS 5ML/HR
     Route: 050
     Dates: start: 20180913, end: 2018
  3. DUOPA [Suspect]
     Active Substance: CARBIDOPA\LEVODOPA
     Dosage: CONTINUOUS 6.8ML/HR
     Route: 050
     Dates: start: 201907
  4. OMEPRAZOLE. [Concomitant]
     Active Substance: OMEPRAZOLE
     Indication: PRODUCT USED FOR UNKNOWN INDICATION
  5. MYRBETRIQ [Concomitant]
     Active Substance: MIRABEGRON
     Indication: PRODUCT USED FOR UNKNOWN INDICATION

REACTIONS (9)
  - Product use issue [Not Recovered/Not Resolved]
  - Impaired healing [Recovering/Resolving]
  - Insomnia [Recovering/Resolving]
  - Uterine disorder [Recovered/Resolved]
  - Procedural pain [Recovered/Resolved]
  - Middle insomnia [Recovering/Resolving]
  - Dyskinesia [Recovering/Resolving]
  - Gait disturbance [Not Recovered/Not Resolved]
  - Overdose [Recovered/Resolved]

NARRATIVE: CASE EVENT DATE: 2018
